FAERS Safety Report 23933795 (Version 1)
Quarter: 2024Q2

REPORT INFORMATION
  Report Type: Spontaneous
  Country: FR (occurrence: FR)
  Receive Date: 20240603
  Receipt Date: 20240603
  Transmission Date: 20240715
  Serious: Yes (Death)
  Sender: FDA-Public Use
  Company Number: None

PATIENT
  Age: 70 Year
  Sex: Male
  Weight: 60 kg

DRUGS (1)
  1. AZITHROMYCIN [Suspect]
     Active Substance: AZITHROMYCIN
     Indication: Bronchiectasis
     Dosage: 3 DF, WEEKLY
     Route: 048
     Dates: start: 20240326, end: 20240408

REACTIONS (1)
  - Hepatitis fulminant [Fatal]

NARRATIVE: CASE EVENT DATE: 20240404
